APPROVED DRUG PRODUCT: MINOXIDIL (FOR WOMEN)
Active Ingredient: MINOXIDIL
Strength: 5%
Dosage Form/Route: AEROSOL, FOAM;TOPICAL
Application: A218616 | Product #002
Applicant: AUROBINDO PHARMA LTD
Approved: Apr 22, 2024 | RLD: No | RS: No | Type: OTC